FAERS Safety Report 4644532-X (Version None)
Quarter: 2005Q2

REPORT INFORMATION
  Report Type: 
  Country: None (occurrence: None)
  Receive Date: 20050425
  Receipt Date: 20050425
  Transmission Date: 20051028
  Serious: Yes (Other)
  Sender: FDA-Public Use
  Company Number: None

PATIENT
  Sex: Female
  Weight: 97.977 kg

DRUGS (2)
  1. ESTROSTEP 21 [Suspect]
     Indication: MENORRHAGIA
     Dosage: ONE  PO QD
     Route: 048
  2. SPRINTEC [Suspect]
     Indication: MENORRHAGIA
     Dosage: ONE PO QD
     Route: 048

REACTIONS (3)
  - MENORRHAGIA [None]
  - METRORRHAGIA [None]
  - PHARMACEUTICAL PRODUCT COMPLAINT [None]
